FAERS Safety Report 9132026 (Version 1)
Quarter: 2013Q1

REPORT INFORMATION
  Report Type: Report from Study
  Country: US (occurrence: US)
  Receive Date: 20130301
  Receipt Date: 20130301
  Transmission Date: 20140127
  Serious: No
  Sender: FDA-Public Use
  Company Number: US-MYLANLABS-2012S1000646

PATIENT
  Age: 37 Year
  Sex: Male

DRUGS (4)
  1. AMNESTEEM CAPSULES [Suspect]
     Indication: HIDRADENITIS
     Route: 048
     Dates: start: 20111208, end: 201112
  2. MINOCYCLINE [Concomitant]
  3. SYNALAR [Concomitant]
  4. CLINDAMYCIN [Concomitant]

REACTIONS (6)
  - Depression [Recovering/Resolving]
  - Mood altered [Recovering/Resolving]
  - Headache [Recovering/Resolving]
  - Arthralgia [Recovering/Resolving]
  - Vomiting [Recovering/Resolving]
  - Nausea [Recovering/Resolving]
